FAERS Safety Report 9304941 (Version 1)
Quarter: 2013Q2

REPORT INFORMATION
  Report Type: Spontaneous
  Country: US (occurrence: None)
  Receive Date: 20130521
  Receipt Date: 20130521
  Transmission Date: 20140414
  Serious: Yes (Other)
  Sender: FDA-Public Use
  Company Number: None

PATIENT
  Age: 57 Year
  Sex: Female
  Weight: 69.85 kg

DRUGS (2)
  1. EFFEXOR XR [Suspect]
     Indication: MIGRAINE
     Route: 048
     Dates: start: 20080509, end: 20130520
  2. EFFEXOR XR [Suspect]
     Indication: DEPRESSION
     Route: 048
     Dates: start: 20080509, end: 20130520

REACTIONS (9)
  - Cough [None]
  - Laryngitis [None]
  - Surgical failure [None]
  - Gastrooesophageal reflux disease [None]
  - Cataract [None]
  - Bipolar disorder [None]
  - Hyperhidrosis [None]
  - Headache [None]
  - Bone pain [None]
